FAERS Safety Report 7285775-9 (Version None)
Quarter: 2011Q1

REPORT INFORMATION
  Report Type: 
  Country: None (occurrence: None)
  Receive Date: 20110124
  Receipt Date: 20110110
  Transmission Date: 20110831
  Serious: No
  Sender: FDA-Public Use
  Company Number: WSDF_00720

PATIENT
  Sex: Female
  Weight: 98.7 kg

DRUGS (7)
  1. NEXIUM [Concomitant]
  2. HYDROCORTISONE [Concomitant]
  3. WINRHO SDF LIQUID [Suspect]
     Indication: THROMBOCYTOPENIA
     Dosage: (30.4 UG/KG TOTAL INTRAVENOUS (NOT OTHERWISE SPECIFIED))
     Route: 042
     Dates: start: 20080408, end: 20080408
  4. VANCOMYCIN [Concomitant]
  5. MICAFUNGIN [Concomitant]
  6. POLYGAM [Concomitant]
  7. METRONIDAZOLE [Concomitant]

REACTIONS (1)
  - INTRAVASCULAR HAEMOLYSIS [None]
